FAERS Safety Report 12604583 (Version 4)
Quarter: 2017Q1

REPORT INFORMATION
  Report Type: Spontaneous
  Country: FR (occurrence: FR)
  Receive Date: 20160728
  Receipt Date: 20170131
  Transmission Date: 20170428
  Serious: Yes (Death, Other)
  Sender: FDA-Public Use
  Company Number: FR-BAYER-2016-144302

PATIENT
  Age: 79 Year
  Sex: Male

DRUGS (11)
  1. ERLOTINIB [Interacting]
     Active Substance: ERLOTINIB
     Indication: NON-SMALL CELL LUNG CANCER
     Dosage: 150 MG, QD
  2. PIPERACILLIN AND TAZOBACTAM [Concomitant]
     Active Substance: PIPERACILLIN SODIUM\TAZOBACTAM SODIUM
     Dosage: UNK
  3. PREDNISOLONE. [Interacting]
     Active Substance: PREDNISOLONE
     Dosage: 20 MG, UNK
  4. PIPERACILLIN AND TAZOBACTAM [Concomitant]
     Active Substance: PIPERACILLIN SODIUM\TAZOBACTAM SODIUM
     Dosage: UNK
  5. SMECTITE [Concomitant]
     Active Substance: MONTMORILLONITE
  6. ACETORPHAN [Concomitant]
  7. LOPERAMIDE [Concomitant]
     Active Substance: LOPERAMIDE
  8. CIPROFLOXACIN. [Suspect]
     Active Substance: CIPROFLOXACIN
     Dosage: UNK
  9. METHYLPREDNISOLONE. [Interacting]
     Active Substance: METHYLPREDNISOLONE
     Indication: VOMITING
     Dosage: 30 MG, QD
  10. PREDNISOLONE. [Interacting]
     Active Substance: PREDNISOLONE
     Dosage: 10 MG, QD
  11. CIPROFLOXACIN. [Interacting]
     Active Substance: CIPROFLOXACIN
     Dosage: UNK

REACTIONS (3)
  - Drug interaction [None]
  - Gastrointestinal perforation [Fatal]
  - Pneumoperitoneum [None]
